FAERS Safety Report 23856407 (Version 3)
Quarter: 2024Q3

REPORT INFORMATION
  Report Type: Spontaneous
  Country: US (occurrence: US)
  Receive Date: 20240515
  Receipt Date: 20240805
  Transmission Date: 20241016
  Serious: Yes (Hospitalization, Other)
  Sender: BRISTOL MYERS SQUIBB
  Company Number: US-BRISTOL-MYERS SQUIBB COMPANY-2024-074486

PATIENT
  Age: 71 Year
  Sex: Female
  Weight: 94.35 kg

DRUGS (2)
  1. POMALYST [Suspect]
     Active Substance: POMALIDOMIDE
     Indication: Plasma cell myeloma
     Dosage: FREQUENCY: 21D ON 7D OFF, 3 WEEKS ON, 1 WEEK OFF
     Route: 048
     Dates: start: 20240201
  2. POMALYST [Suspect]
     Active Substance: POMALIDOMIDE
     Indication: Plasma cell myeloma recurrent

REACTIONS (3)
  - Transient ischaemic attack [Recovering/Resolving]
  - Fatigue [Unknown]
  - Alopecia [Unknown]
